FAERS Safety Report 11407267 (Version 2)
Quarter: 2015Q4

REPORT INFORMATION
  Report Type: Spontaneous
  Country: US (occurrence: US)
  Receive Date: 20150821
  Receipt Date: 20151012
  Transmission Date: 20160304
  Serious: No
  Sender: FDA-Public Use
  Company Number: US-ELI_LILLY_AND_COMPANY-US201508005835

PATIENT
  Sex: Female

DRUGS (2)
  1. FORTEO [Suspect]
     Active Substance: TERIPARATIDE
     Indication: OSTEOPOROSIS
     Dosage: UNK, QD
     Route: 065
     Dates: start: 201505
  2. FORTEO [Suspect]
     Active Substance: TERIPARATIDE
     Dosage: UNK, UNKNOWN
     Route: 065

REACTIONS (7)
  - Feeling abnormal [Unknown]
  - Underdose [Unknown]
  - Nausea [Unknown]
  - Abdominal pain upper [Unknown]
  - Head discomfort [Unknown]
  - Inappropriate schedule of drug administration [Unknown]
  - Accidental overdose [Unknown]

NARRATIVE: CASE EVENT DATE: 20150818
